FAERS Safety Report 6674350-2 (Version None)
Quarter: 2010Q1

REPORT INFORMATION
  Report Type: 
  Country: None (occurrence: None)
  Receive Date: 20100329
  Receipt Date: 20090620
  Transmission Date: 20100710
  Serious: Yes (Other)
  Sender: FDA-Public Use
  Company Number: 2009198520

PATIENT
  Sex: Female

DRUGS (4)
  1. GEODON [Suspect]
     Indication: MAJOR DEPRESSION
     Dates: start: 20050101, end: 20080601
  2. GEODON [Suspect]
     Indication: OBSESSIVE-COMPULSIVE DISORDER
     Dates: start: 20050101, end: 20080601
  3. VENLAFAXINE HCL [Concomitant]
  4. SYMBYAX [Concomitant]

REACTIONS (1)
  - TARDIVE DYSKINESIA [None]
